FAERS Safety Report 17501388 (Version 1)
Quarter: 2020Q1

REPORT INFORMATION
  Report Type: Spontaneous
  Country: US (occurrence: US)
  Receive Date: 20200304
  Receipt Date: 20200304
  Transmission Date: 20200409
  Serious: Yes (Other)
  Sender: FDA-Public Use
  Company Number: None

PATIENT
  Age: 35 Year
  Sex: Male
  Weight: 90 kg

DRUGS (7)
  1. FLOVENT [Concomitant]
     Active Substance: FLUTICASONE PROPIONATE
  2. MONTELEUKAST [Suspect]
     Active Substance: MONTELUKAST SODIUM
     Dates: start: 20140303, end: 20200304
  3. PRILOSEC [Concomitant]
     Active Substance: OMEPRAZOLE MAGNESIUM
  4. VIT B [Concomitant]
     Active Substance: VITAMIN B
  5. HYRDOXYZINE [Concomitant]
  6. POTASSIUM [Concomitant]
     Active Substance: POTASSIUM
  7. ALBUTEROL. [Concomitant]
     Active Substance: ALBUTEROL

REACTIONS (11)
  - Depression [None]
  - Insomnia [None]
  - Anxiety [None]
  - Agitation [None]
  - Abnormal dreams [None]
  - Suicidal ideation [None]
  - Disorientation [None]
  - Confusional state [None]
  - Disturbance in attention [None]
  - Hostility [None]
  - Aggression [None]

NARRATIVE: CASE EVENT DATE: 20200101
